FAERS Safety Report 5893149-8 (Version None)
Quarter: 2008Q3

REPORT INFORMATION
  Report Type: 
  Country: None (occurrence: None)
  Receive Date: 20080922
  Receipt Date: 20080922
  Transmission Date: 20090109
  Serious: No
  Sender: FDA-Public Use
  Company Number: None

PATIENT
  Sex: Male

DRUGS (1)
  1. FUROSEMIDE [Suspect]
     Indication: OEDEMA
     Dosage: 1 ONCE DAILY PO
     Route: 048
     Dates: start: 20080915, end: 20080918

REACTIONS (2)
  - DIZZINESS [None]
  - NAUSEA [None]
